FAERS Safety Report 23868122 (Version 1)
Quarter: 2024Q2

REPORT INFORMATION
  Report Type: Report from Study
  Country: US (occurrence: US)
  Receive Date: 20240517
  Receipt Date: 20240517
  Transmission Date: 20240716
  Serious: Yes (Other)
  Sender: FDA-Public Use
  Company Number: US-ARGENX-2024-ARGX-US003233

PATIENT

DRUGS (1)
  1. VYVGART HYTRULO [Suspect]
     Active Substance: EFGARTIGIMOD ALFA\HYALURONIDASE-QVFC
     Indication: Myasthenia gravis
     Dosage: 1008 MG (11,200 UNITS), 1/WEEK FOR 4 WEEKS ON, 4 WEEKS OFF
     Route: 058
     Dates: start: 202211

REACTIONS (5)
  - Choking [Unknown]
  - Mobility decreased [Unknown]
  - Eyelid ptosis [Unknown]
  - Loss of personal independence in daily activities [Unknown]
  - Fatigue [Unknown]
